FAERS Safety Report 8960324 (Version 1)
Quarter: 2012Q4

REPORT INFORMATION
  Report Type: 
  Country: CH (occurrence: US)
  Receive Date: 20121211
  Receipt Date: 20121211
  Transmission Date: 20130627
  Serious: Yes (Hospitalization)
  Sender: FDA-Public Use
  Company Number: US-009507513-1212USA002685

PATIENT
  Age: 76 Year
  Sex: Male

DRUGS (17)
  1. JANUMET [Suspect]
     Indication: DIABETES MELLITUS
     Dosage: 1 DF, bid
     Route: 048
     Dates: end: 20110131
  2. AVELOX [Interacting]
     Indication: PNEUMONITIS
     Dosage: 400 mg, qd
     Route: 048
     Dates: start: 20101224, end: 20101231
  3. GLICLAZIDE [Interacting]
     Indication: DIABETES MELLITUS
     Dosage: UNK, qd
     Route: 048
     Dates: end: 20110131
  4. SINTROM [Concomitant]
     Indication: DIABETES MELLITUS
  5. ASPIRIN [Concomitant]
     Indication: DIABETES MELLITUS
  6. TORSEMIDE [Concomitant]
     Indication: DIABETES MELLITUS
  7. DIOVAN [Concomitant]
     Indication: DIABETES MELLITUS
  8. SIMVASTATIN [Concomitant]
  9. CORVATON [Concomitant]
  10. FLAMON [Concomitant]
  11. METOPROLOL SUCCINATE [Concomitant]
  12. MADOPAR [Concomitant]
  13. DIGOXIN [Concomitant]
  14. CARVEDILOL [Concomitant]
  15. MEPHANOL [Concomitant]
  16. PANTOZOL [Concomitant]
  17. XANAX [Concomitant]

REACTIONS (1)
  - Hypoglycaemia [Recovered/Resolved]
